FAERS Safety Report 7615818-1 (Version None)
Quarter: 2011Q3

REPORT INFORMATION
  Report Type: 
  Country: None (occurrence: None)
  Receive Date: 20110711
  Receipt Date: 20110624
  Transmission Date: 20111222
  Serious: Yes (Hospitalization, Other)
  Sender: FDA-Public Use
  Company Number: 2011MA008034

PATIENT
  Age: 43 Year
  Sex: Female

DRUGS (4)
  1. ESCITALOPRAM [Concomitant]
  2. LEVETIRACETAM [Concomitant]
  3. IBUPROFEN [Concomitant]
  4. PHENYTOIN [Suspect]
     Indication: CONVULSION

REACTIONS (6)
  - HEADACHE [None]
  - DRUG RASH WITH EOSINOPHILIA AND SYSTEMIC SYMPTOMS [None]
  - PYREXIA [None]
  - BILIARY CIRRHOSIS PRIMARY [None]
  - LYMPHADENOPATHY [None]
  - HEPATIC FAILURE [None]
